FAERS Safety Report 9156444 (Version 1)
Quarter: 2013Q1

REPORT INFORMATION
  Report Type: Spontaneous
  Country: US (occurrence: US)
  Receive Date: 20130312
  Receipt Date: 20130312
  Transmission Date: 20140127
  Serious: No
  Sender: FDA-Public Use
  Company Number: US-BIOGENIDEC-2013BI021040

PATIENT
  Sex: Female

DRUGS (2)
  1. TYSABRI [Suspect]
     Indication: MULTIPLE SCLEROSIS
     Route: 042
     Dates: start: 20060818
  2. AVONEX [Concomitant]
     Indication: MULTIPLE SCLEROSIS
     Route: 030
     Dates: start: 19990731, end: 20060731

REACTIONS (4)
  - Skin burning sensation [Not Recovered/Not Resolved]
  - Head titubation [Not Recovered/Not Resolved]
  - Peroneal nerve palsy [Recovered/Resolved]
  - Neuropathy peripheral [Not Recovered/Not Resolved]
